FAERS Safety Report 9762792 (Version 1)
Quarter: 2013Q4

REPORT INFORMATION
  Report Type: Spontaneous
  Country: FR (occurrence: None)
  Receive Date: 20131213
  Receipt Date: 20131213
  Transmission Date: 20140711
  Serious: Yes (Life-Threatening)
  Sender: FDA-Public Use
  Company Number: 2013CP000155

PATIENT
  Age: 66 Year
  Sex: Male

DRUGS (16)
  1. PERFALGAN [Suspect]
     Route: 042
     Dates: start: 20130528, end: 20130606
  2. VANCOMYCIN [Suspect]
     Route: 042
     Dates: start: 20130515, end: 20130606
  3. TIENAM (PRIMAXIN) [Suspect]
     Indication: INFECTION
     Route: 042
     Dates: start: 20130515, end: 20130606
  4. AMLODIPINE [Concomitant]
  5. CALCIDIA [Concomitant]
  6. DOLIPRANE [Concomitant]
  7. PARIET [Concomitant]
  8. TOPALGIC [Concomitant]
  9. TRANSIPEG [Concomitant]
  10. DEDROGYL [Concomitant]
  11. CALCIPARINE [Concomitant]
  12. UMULINE PROTAMINE ISOPHANE (NPH) [Concomitant]
  13. NOVOMIX [Concomitant]
  14. DISCOTRINE [Concomitant]
  15. BISOPROLOL [Concomitant]
  16. HUMALOG [Concomitant]

REACTIONS (6)
  - Drug reaction with eosinophilia and systemic symptoms [None]
  - Renal failure chronic [None]
  - Hypotension [None]
  - Metabolic acidosis [None]
  - Nephritis allergic [None]
  - Toxic skin eruption [None]
